FAERS Safety Report 23319070 (Version 1)
Quarter: 2023Q4

REPORT INFORMATION
  Report Type: Spontaneous
  Country: US (occurrence: US)
  Receive Date: 20231220
  Receipt Date: 20231220
  Transmission Date: 20240110
  Serious: No
  Sender: FDA-Public Use
  Company Number: US-Accord-303613

PATIENT
  Sex: Female
  Weight: 75.75 kg

DRUGS (1)
  1. BUPROPION HYDROCHLORIDE [Suspect]
     Active Substance: BUPROPION HYDROCHLORIDE
     Indication: Generalised anxiety disorder
     Dosage: STRENGTH: 150MG, DOSE: 150MG DAILY (IN THE MORNING), EXTENDED RELEASE TABLET
     Route: 048
     Dates: start: 202203

REACTIONS (2)
  - Product odour abnormal [Unknown]
  - Off label use [Unknown]
